FAERS Safety Report 24743495 (Version 1)
Quarter: 2024Q4

REPORT INFORMATION
  Report Type: Spontaneous
  Country: CN (occurrence: CN)
  Receive Date: 20241217
  Receipt Date: 20241217
  Transmission Date: 20250115
  Serious: Yes (Life-Threatening, Hospitalization, Other)
  Sender: BAXTER
  Company Number: None

PATIENT
  Age: 2 Year
  Sex: Female

DRUGS (3)
  1. CYCLOPHOSPHAMIDE [Suspect]
     Active Substance: CYCLOPHOSPHAMIDE
     Indication: Mediastinum neoplasm
     Dosage: 0.77 G, ONCE A DAY
     Route: 041
     Dates: start: 20241125, end: 20241126
  2. ADRIAMYCIN [Suspect]
     Active Substance: DOXORUBICIN HYDROCHLORIDE
     Indication: Mediastinum neoplasm
     Dosage: 9.1 MG, ONCE A DAY
     Route: 041
     Dates: start: 20241125, end: 20241127
  3. VINCRISTINE [Suspect]
     Active Substance: VINCRISTINE
     Indication: Mediastinum neoplasm
     Dosage: 0.24 MG, ONCE A DAY
     Route: 041
     Dates: start: 20241125, end: 20241127

REACTIONS (36)
  - Cardio-respiratory arrest [Unknown]
  - Staring [Unknown]
  - Unresponsive to stimuli [Unknown]
  - Cyanosis [Unknown]
  - Oral discharge [Unknown]
  - Oxygen saturation decreased [Unknown]
  - Heart rate abnormal [Unknown]
  - Blood pressure immeasurable [Unknown]
  - Peripheral coldness [Unknown]
  - Physical examination abnormal [Unknown]
  - Hyperventilation [Unknown]
  - Pupillary reflex impaired [Unknown]
  - Breath sounds abnormal [Unknown]
  - Heart sounds abnormal [Unknown]
  - Abdominal distension [Unknown]
  - Ileus paralytic [Unknown]
  - Myelosuppression [Unknown]
  - Perineal ulceration [Unknown]
  - Anal ulcer [Unknown]
  - Coordination abnormal [Unknown]
  - Hypotonia [Unknown]
  - Mydriasis [Unknown]
  - Anisocoria [Unknown]
  - Pupillary reflex impaired [Unknown]
  - Brain herniation [Unknown]
  - Urine output increased [Unknown]
  - Urinary tract disorder [Unknown]
  - Illness [Unknown]
  - Effusion [Unknown]
  - Anal erythema [Unknown]
  - Gastrointestinal sounds abnormal [Unknown]
  - Perineal erythema [Unknown]
  - Perineal swelling [Unknown]
  - Constipation [Unknown]
  - Rash erythematous [Unknown]
  - Swelling [Unknown]

NARRATIVE: CASE EVENT DATE: 20241128
